FAERS Safety Report 6337187-X (Version None)
Quarter: 2009Q3

REPORT INFORMATION
  Report Type: 
  Country: None (occurrence: None)
  Receive Date: 20090819
  Receipt Date: 20090810
  Transmission Date: 20100115
  Serious: Yes (Hospitalization)
  Sender: FDA-Public Use
  Company Number: THYM-1001147

PATIENT
  Age: 52 Year
  Sex: Female
  Weight: 70 kg

DRUGS (5)
  1. THYMOGLOBULIN [Suspect]
     Indication: APLASTIC ANAEMIA
     Dosage: 225 MG, QD, INTRAVENOUS
     Route: 042
     Dates: start: 20090615, end: 20090619
  2. METHYLPREDNISOLONE [Concomitant]
  3. GLYCYRRHIZIN GLYCINE CYSTEINE COMBINED DRUG (GLYCYRRHIZIN GLYCINE CYST [Concomitant]
  4. LENOGRASTIM (LENOGRASTIM) [Concomitant]
  5. ACYCLOVIR [Concomitant]

REACTIONS (4)
  - ARTHRALGIA [None]
  - BONE PAIN [None]
  - HERPES SIMPLEX [None]
  - MYALGIA [None]
